FAERS Safety Report 15198004 (Version 1)
Quarter: 2018Q3

REPORT INFORMATION
  Report Type: Spontaneous
  Country: US (occurrence: US)
  Receive Date: 20180725
  Receipt Date: 20180725
  Transmission Date: 20181010
  Serious: No
  Sender: FDA-Public Use
  Company Number: US-ABBVIE-18P-163-2419181-00

PATIENT
  Sex: Female
  Weight: 56.75 kg

DRUGS (1)
  1. SYNTHROID [Suspect]
     Active Substance: LEVOTHYROXINE SODIUM
     Indication: HYPOTHYROIDISM
     Route: 048
     Dates: start: 1995

REACTIONS (5)
  - Osteopenia [Not Recovered/Not Resolved]
  - Vulvovaginal dryness [Recovered/Resolved]
  - Drug dose omission [Not Recovered/Not Resolved]
  - Menopause [Recovered/Resolved]
  - Osteoporosis [Recovering/Resolving]

NARRATIVE: CASE EVENT DATE: 2013
